FAERS Safety Report 5615025-8 (Version None)
Quarter: 2008Q1

REPORT INFORMATION
  Report Type: 
  Country: None (occurrence: None)
  Receive Date: 20080201
  Receipt Date: 20080128
  Transmission Date: 20080703
  Serious: Yes (Death, Other)
  Sender: FDA-Public Use
  Company Number: 163-20785-07121191

PATIENT
  Age: 73 Year
  Sex: Female

DRUGS (14)
  1. THALOMID [Suspect]
     Indication: AMYLOIDOSIS
     Dosage: 100 MG, QD X 28, ORAL
     Route: 048
     Dates: start: 20071127, end: 20071101
  2. SERTRALINE [Concomitant]
  3. FERROUS SULFATE TAB [Concomitant]
  4. LEVOTHYROXINE SODIUM [Concomitant]
  5. MULTIVITAMIN [Concomitant]
  6. POTASSIUM CHLORIDE [Concomitant]
  7. ATORVASTATIN CALCIUM [Concomitant]
  8. COLACE (DOCUSTAE SODIUM) [Concomitant]
  9. DEXAMETHASONE TAB [Concomitant]
  10. GENTAMICIN [Concomitant]
  11. ERYTHROPOETIN (EPOETIN ALFA) [Concomitant]
  12. CEGAZOLIN (CEFAZOLIN) [Concomitant]
  13. CEFTAZIDIME [Concomitant]
  14. HEPARIN [Concomitant]

REACTIONS (3)
  - ANAEMIA [None]
  - HYPOTENSION [None]
  - PERITONITIS [None]
